FAERS Safety Report 10243777 (Version 2)
Quarter: 2014Q2

REPORT INFORMATION
  Report Type: Spontaneous
  Country: US (occurrence: US)
  Receive Date: 20140618
  Receipt Date: 20140618
  Transmission Date: 20141212
  Serious: No
  Sender: FDA-Public Use
  Company Number: US-ASTRAZENECA-2014SE31761

PATIENT
  Age: 83 Year
  Sex: Female

DRUGS (1)
  1. SYMBICORT [Suspect]
     Dosage: 80MCG/4.5MCG, 2 PUMPS TWICE A DAY
     Route: 055

REACTIONS (3)
  - Fibromyalgia [Unknown]
  - Hypoacusis [Unknown]
  - Drug dose omission [Unknown]
